FAERS Safety Report 7230857-0 (Version None)
Quarter: 2011Q1

REPORT INFORMATION
  Report Type: 
  Country: None (occurrence: None)
  Receive Date: 20110118
  Receipt Date: 20110114
  Transmission Date: 20110831
  Serious: Yes (Other)
  Sender: FDA-Public Use
  Company Number: US-ABBOTT-11P-163-0697613-00

PATIENT
  Sex: Male
  Weight: 45 kg

DRUGS (1)
  1. HUMIRA [Suspect]
     Indication: CROHN'S DISEASE
     Dates: start: 20090204, end: 20100301

REACTIONS (4)
  - PYREXIA [None]
  - ABDOMINAL PAIN [None]
  - GROWTH RETARDATION [None]
  - DIARRHOEA [None]
